FAERS Safety Report 8831305 (Version 2)
Quarter: 2012Q4

REPORT INFORMATION
  Report Type: 
  Country: GB (occurrence: GB)
  Receive Date: 20121008
  Receipt Date: 20121120
  Transmission Date: 20130627
  Serious: Yes (Other)
  Sender: FDA-Public Use
  Company Number: GB-RANBAXY-2012R1-60630

PATIENT
  Age: 21 Year
  Sex: Male

DRUGS (3)
  1. AMOXICILLIN [Suspect]
     Indication: PRODUCT USED FOR UNKNOWN INDICATION
     Dosage: UNK
     Route: 042
  2. METRONIDAZOLE [Concomitant]
     Indication: PRODUCT USED FOR UNKNOWN INDICATION
     Dosage: UNK
     Route: 065
  3. DEXAMETHASONE [Concomitant]
     Indication: PRODUCT USED FOR UNKNOWN INDICATION
     Dosage: UNK
     Route: 065

REACTIONS (14)
  - Jarisch-Herxheimer reaction [Unknown]
  - Chills [Unknown]
  - Agitation [Unknown]
  - Delusional disorder, unspecified type [Unknown]
  - Hyperhidrosis [Unknown]
  - Tonic clonic movements [Unknown]
  - Respiratory alkalosis [Unknown]
  - Sinus tachycardia [Unknown]
  - Hallucination, visual [Unknown]
  - Hallucination, auditory [Unknown]
  - Vomiting [Unknown]
  - Emotional distress [Unknown]
  - Hyperventilation [Unknown]
  - Agitation [Unknown]
